APPROVED DRUG PRODUCT: LIDOCAINE HYDROCHLORIDE
Active Ingredient: LIDOCAINE HYDROCHLORIDE
Strength: 4%
Dosage Form/Route: INJECTABLE;INJECTION
Application: A084626 | Product #001
Applicant: ELKINS SINN DIV AH ROBINS CO INC
Approved: Approved Prior to Jan 1, 1982 | RLD: No | RS: No | Type: DISCN